FAERS Safety Report 4757116-X (Version None)
Quarter: 2005Q3

REPORT INFORMATION
  Report Type: 
  Country: None (occurrence: None)
  Receive Date: 20050829
  Receipt Date: 20050815
  Transmission Date: 20060218
  Serious: Yes (Other)
  Sender: FDA-Public Use
  Company Number: 2005116158

PATIENT
  Age: 50 Year
  Sex: Male

DRUGS (1)
  1. SOLU-MEDROL [Suspect]
     Indication: PROPHYLAXIS
     Dosage: (ONCE), INTRAMUSCULAR
     Route: 030
     Dates: start: 20050101

REACTIONS (2)
  - ABSCESS [None]
  - INJECTION SITE INFECTION [None]
